FAERS Safety Report 4840679-3 (Version None)
Quarter: 2005Q4

REPORT INFORMATION
  Report Type: 
  Country: None (occurrence: None)
  Receive Date: 20051027
  Receipt Date: 20050311
  Transmission Date: 20060501
  Serious: Yes (Hospitalization, Other)
  Sender: FDA-Public Use
  Company Number: HQWYE162616MAR05

PATIENT
  Age: 74 Year
  Sex: Female
  Weight: 86.26 kg

DRUGS (4)
  1. PREMARIN [Suspect]
     Indication: OSTEOPOROSIS PROPHYLAXIS
     Dosage: ORAL
     Route: 048
     Dates: start: 19910101, end: 20010101
  2. ACCUPRIL [Concomitant]
  3. MAXIDEX (BENZALKONIUM CHLORIDE/DEXAMETHASONE/PHENYLMERCURIC NITRATE) [Concomitant]
  4. ASPIRIN [Concomitant]

REACTIONS (2)
  - BREAST CANCER [None]
  - PHLEBITIS [None]
